FAERS Safety Report 6475310-7 (Version None)
Quarter: 2009Q4

REPORT INFORMATION
  Report Type: 
  Country: None (occurrence: None)
  Receive Date: 20091204
  Receipt Date: 20090427
  Transmission Date: 20100525
  Serious: Yes (Hospitalization)
  Sender: FDA-Public Use
  Company Number: AR-ELI_LILLY_AND_COMPANY-AR200904003339

PATIENT
  Age: 9 Year
  Sex: Male

DRUGS (5)
  1. HUMULIN N [Suspect]
     Indication: TYPE 1 DIABETES MELLITUS
     Dosage: 18 IU, EACH MORNING
     Route: 065
     Dates: start: 20090301
  2. HUMULIN N [Suspect]
     Dosage: 5 IU, EACH EVENING
     Route: 065
     Dates: start: 20090301, end: 20090401
  3. HUMALOG [Concomitant]
     Indication: BLOOD GLUCOSE ABNORMAL
     Dosage: UNK, AS NEEDED
     Route: 065
  4. NPH INSULIN [Concomitant]
     Indication: TYPE 1 DIABETES MELLITUS
     Dosage: UNK, UNKNOWN
     Route: 065
     Dates: start: 20090411
  5. LANTUS [Concomitant]
     Indication: TYPE 1 DIABETES MELLITUS
     Dosage: UNK, UNKNOWN
     Route: 065
     Dates: start: 20090414

REACTIONS (4)
  - HYPERGLYCAEMIA [None]
  - KETOSIS [None]
  - ORTHOSTATIC HYPOTENSION [None]
  - URTICARIA [None]
